FAERS Safety Report 14209684 (Version 5)
Quarter: 2018Q1

REPORT INFORMATION
  Report Type: Spontaneous
  Country: US (occurrence: US)
  Receive Date: 20171121
  Receipt Date: 20180116
  Transmission Date: 20180508
  Serious: No
  Sender: FDA-Public Use
  Company Number: US-PFIZER INC-2017495536

PATIENT
  Age: 12 Year
  Sex: Male
  Weight: 35 kg

DRUGS (3)
  1. GENOTROPIN [Suspect]
     Active Substance: SOMATROPIN
     Indication: SMALL FOR DATES BABY
  2. GENOTROPIN [Suspect]
     Active Substance: SOMATROPIN
     Indication: GROWTH HORMONE DEFICIENCY
  3. GENOTROPIN [Suspect]
     Active Substance: SOMATROPIN
     Indication: LOW BIRTH WEIGHT BABY
     Dosage: 1.2 MG, DAILY (AT NIGHT)
     Route: 058
     Dates: start: 20170520

REACTIONS (7)
  - Dry skin [Recovered/Resolved]
  - Seborrhoeic dermatitis [Recovered/Resolved]
  - Dandruff [Recovered/Resolved]
  - Incorrect dose administered [Unknown]
  - Device issue [Unknown]
  - Erythema [Recovered/Resolved]
  - Drug dose omission [Unknown]

NARRATIVE: CASE EVENT DATE: 201707
